FAERS Safety Report 9576321 (Version 2)
Quarter: 2014Q1

REPORT INFORMATION
  Report Type: Spontaneous
  Country: US (occurrence: US)
  Receive Date: 20131001
  Receipt Date: 20140225
  Transmission Date: 20141002
  Serious: No
  Sender: FDA-Public Use
  Company Number: US-AMGEN-USASP2013002300

PATIENT
  Age: 54 Year
  Sex: Male
  Weight: 69.39 kg

DRUGS (6)
  1. ENBREL [Suspect]
     Indication: PSORIATIC ARTHROPATHY
     Dosage: 50 MG, QWK
     Route: 058
     Dates: start: 20050401, end: 20131229
  2. VITAMIN C                          /00008001/ [Concomitant]
     Dosage: 500 MG, UNK
  3. VITAMIN D                          /00107901/ [Concomitant]
     Dosage: 400 UNIT, UNK
  4. FISH OIL [Concomitant]
     Dosage: UNK
  5. PROBIOTIC                          /06395501/ [Concomitant]
     Dosage: UNK
  6. AMOXICILLIN [Concomitant]
     Dosage: 250 MG, UNK

REACTIONS (7)
  - Influenza like illness [Unknown]
  - Chest X-ray abnormal [Unknown]
  - Upper respiratory tract infection [Recovered/Resolved]
  - Sputum discoloured [Not Recovered/Not Resolved]
  - Rhinorrhoea [Not Recovered/Not Resolved]
  - Bronchitis [Not Recovered/Not Resolved]
  - Infection [Not Recovered/Not Resolved]
